FAERS Safety Report 8665373 (Version 5)
Quarter: 2012Q4

REPORT INFORMATION
  Report Type: 
  Country: US (occurrence: US)
  Receive Date: 20120716
  Receipt Date: 20120906
  Transmission Date: 20130627
  Serious: Yes (Hospitalization, Other)
  Sender: FDA-Public Use
  Company Number: US-009507513-2011SP046637

PATIENT

DRUGS (2)
  1. NUVARING [Suspect]
     Indication: CONTRACEPTION
     Dosage: UNK
     Dates: start: 200901, end: 200910
  2. VITAMINS (UNSPECIFIED) [Concomitant]
     Indication: NUTRITIONAL SUPPORT
     Dosage: UNK UNK, QD

REACTIONS (51)
  - Pulmonary embolism [Recovered/Resolved with Sequelae]
  - Deep vein thrombosis [Recovered/Resolved]
  - Fear [Not Recovered/Not Resolved]
  - Anxiety [Not Recovered/Not Resolved]
  - Depression [Not Recovered/Not Resolved]
  - Vaginal haemorrhage [Unknown]
  - Dyspareunia [Unknown]
  - Cervical dysplasia [Unknown]
  - Menorrhagia [Unknown]
  - Oedema peripheral [Not Recovered/Not Resolved]
  - Pain in extremity [Unknown]
  - Breast cellulitis [Not Recovered/Not Resolved]
  - Weight increased [Unknown]
  - Mastitis [Not Recovered/Not Resolved]
  - Dermatitis [Unknown]
  - Breast inflammation [Unknown]
  - Breast abscess [Unknown]
  - Headache [None]
  - Breast mass [None]
  - Memory impairment [None]
  - Dizziness [None]
  - Weight increased [None]
  - Hernia repair [None]
  - Heart rate irregular [None]
  - Panic attack [None]
  - Palpitations [None]
  - Hyperhidrosis [None]
  - Chills [None]
  - Pallor [None]
  - Cough [None]
  - Nausea [None]
  - Vomiting [None]
  - Abdominal pain [None]
  - Alcohol use [None]
  - Supraventricular extrasystoles [None]
  - Ventricular tachycardia [None]
  - Hepatic steatosis [None]
  - Pain in extremity [None]
  - Mitral valve incompetence [None]
  - Tricuspid valve incompetence [None]
  - Pulmonary valve incompetence [None]
  - Pulmonary fibrosis [None]
  - Cerebrovascular accident [None]
  - Extrasystoles [None]
  - Dizziness [None]
  - Chest discomfort [None]
  - Emotional disorder [None]
  - Chest discomfort [None]
  - Chest discomfort [None]
  - Dyspepsia [None]
  - Ventricular extrasystoles [None]
